FAERS Safety Report 19366734 (Version 1)
Quarter: 2021Q2

REPORT INFORMATION
  Report Type: Spontaneous
  Country: JP (occurrence: JP)
  Receive Date: 20210603
  Receipt Date: 20210603
  Transmission Date: 20210717
  Serious: Yes (Hospitalization)
  Sender: FDA-Public Use
  Company Number: JP-TEVA-2021-JP-1917361

PATIENT
  Age: 54 Year
  Sex: Male
  Weight: 54.9 kg

DRUGS (4)
  1. OXALIPLATIN. [Suspect]
     Active Substance: OXALIPLATIN
     Indication: GASTRIC CANCER STAGE IV
     Dosage: HE WAS ADMINISTERED FOLFOX 3 H PRIOR TO THE START OF A 4 H DIALYSIS PERIOD ON DAY 1 OF EACH 2?WEE...
     Route: 042
  2. 5?FLUOROURACIL [Suspect]
     Active Substance: FLUOROURACIL
     Indication: GASTRIC CANCER STAGE IV
     Dosage: THE REDUCED SUSTAINED DOSE CONTINUOUS INTRAVENOUS INFUSION 1200 MG/M 2 ; TOTAL DOSE OF 1942.6 MG ...
     Route: 041
  3. LEVOFOLINIC ACID [Suspect]
     Active Substance: LEVOLEUCOVORIN
     Indication: GASTRIC CANCER STAGE IV
     Dosage: HE WAS ADMINISTERED FOLFOX 3 H PRIOR TO THE START OF A 4 H DIALYSIS PERIOD ON DAY 1 OF EACH 2?WEE...
     Route: 042
  4. 5?FLUOROURACIL [Suspect]
     Active Substance: FLUOROURACIL
     Indication: GASTRIC CANCER STAGE IV
     Dosage: HE WAS ADMINISTERED FOLFOX 3 H PRIOR TO THE START OF A 4 H DIALYSIS PERIOD ON DAY 1 OF EACH 2?WEE...
     Route: 040

REACTIONS (1)
  - Thrombocytopenia [Recovered/Resolved]
